FAERS Safety Report 21026002 (Version 2)
Quarter: 2022Q3

REPORT INFORMATION
  Report Type: Spontaneous
  Country: CO (occurrence: CO)
  Receive Date: 20220630
  Receipt Date: 20220811
  Transmission Date: 20221026
  Serious: No
  Sender: FDA-Public Use
  Company Number: CO-PFIZER INC-PV202200004950

PATIENT

DRUGS (1)
  1. GENOTROPIN [Suspect]
     Active Substance: SOMATROPIN
     Dosage: 0.2 MG, UNSPECIFIED FREQUENCY
     Route: 058

REACTIONS (3)
  - Hypoglycaemia [Unknown]
  - Wrong technique in product usage process [Unknown]
  - Device physical property issue [Unknown]
